FAERS Safety Report 19561847 (Version 1)
Quarter: 2021Q3

REPORT INFORMATION
  Report Type: Spontaneous
  Country: US (occurrence: US)
  Receive Date: 20210715
  Receipt Date: 20210715
  Transmission Date: 20211014
  Serious: No
  Sender: FDA-Public Use
  Company Number: US-MYLANLABS-2021M1041706

PATIENT
  Sex: Female

DRUGS (1)
  1. DIMETHYL FUMARATE DELAYED?RELEASE CAPSULES [Suspect]
     Active Substance: DIMETHYL FUMARATE
     Dosage: 240 MILLIGRAM

REACTIONS (1)
  - Drug ineffective [Unknown]
